FAERS Safety Report 8933419 (Version 1)
Quarter: 2012Q4

REPORT INFORMATION
  Report Type: 
  Country: GB (occurrence: GB)
  Receive Date: 20121128
  Receipt Date: 20121128
  Transmission Date: 20130627
  Serious: Yes (Hospitalization)
  Sender: FDA-Public Use
  Company Number: GB-PFIZER INC-2012296477

PATIENT
  Age: 41 Year
  Sex: Female
  Weight: 55.5 kg

DRUGS (3)
  1. GENOTROPIN [Suspect]
     Dosage: UNK
     Route: 058
     Dates: start: 20041108
  2. THYROXINE [Concomitant]
     Indication: THYROID STIMULATING HORMONE DECREASED
     Dosage: UNK
     Dates: start: 19940701
  3. THYROXINE [Concomitant]
     Indication: PRIMARY HYPOTHYROIDISM

REACTIONS (1)
  - Fall [Unknown]
